FAERS Safety Report 9182391 (Version 1)
Quarter: 2012Q4

REPORT INFORMATION
  Report Type: 
  Country: US (occurrence: US)
  Receive Date: 20121030
  Receipt Date: 20121030
  Transmission Date: 20130627
  Serious: No
  Sender: FDA-Public Use
  Company Number: US-GLAXOSMITHKLINE-A0943935A

PATIENT
  Age: 20 Year
  Sex: Female
  Weight: 91.4 kg

DRUGS (7)
  1. IMITREX [Suspect]
     Indication: PRODUCT USED FOR UNKNOWN INDICATION
     Dosage: 20MG Unknown
     Route: 045
     Dates: start: 20110722
  2. ADVAIR [Concomitant]
     Indication: ASTHMA
     Dosage: 1PUFF Twice per day
     Route: 055
  3. VENTOLIN HFA [Concomitant]
     Indication: ASTHMA
     Route: 055
  4. ATENOLOL [Concomitant]
     Indication: MIGRAINE
     Dosage: 50MG Per day
     Route: 048
  5. METFORMIN [Concomitant]
     Indication: TYPE 2 DIABETES MELLITUS
     Dosage: 500MG Twice per day
     Route: 048
  6. AMITRIPTYLINE [Concomitant]
     Indication: MIGRAINE
     Dosage: 50MG Per day
     Route: 048
  7. TOPAMAX [Concomitant]
     Indication: MIGRAINE
     Dosage: 50MG Twice per day
     Route: 048

REACTIONS (1)
  - Epistaxis [Recovered/Resolved]
